FAERS Safety Report 24320973 (Version 2)
Quarter: 2024Q4

REPORT INFORMATION
  Report Type: Report from Study
  Country: US (occurrence: US)
  Receive Date: 20240915
  Receipt Date: 20241011
  Transmission Date: 20250114
  Serious: Yes (Other)
  Sender: ABBVIE
  Company Number: US-ABBVIE-5918925

PATIENT
  Sex: Male

DRUGS (1)
  1. SKYRIZI [Suspect]
     Active Substance: RISANKIZUMAB-RZAA
     Indication: Crohn^s disease
     Route: 058
     Dates: start: 20220616

REACTIONS (3)
  - Eyelid operation [Recovering/Resolving]
  - Wrist surgery [Recovering/Resolving]
  - Shoulder operation [Recovering/Resolving]

NARRATIVE: CASE EVENT DATE: 20240101
